FAERS Safety Report 6469067-3 (Version None)
Quarter: 2009Q4

REPORT INFORMATION
  Report Type: 
  Country: None (occurrence: None)
  Receive Date: 20091201
  Receipt Date: 20091113
  Transmission Date: 20100525
  Serious: Yes (Congenital Anomaly, Other)
  Sender: FDA-Public Use
  Company Number: 20090537

PATIENT
  Sex: Female

DRUGS (1)
  1. VENOFER [Suspect]
     Dosage: 200 MG IN 100 NACL OVER 2 HRS INTRAVENOUS
     Route: 042
     Dates: start: 20080502, end: 20080502

REACTIONS (7)
  - ATRIOVENTRICULAR SEPTAL DEFECT [None]
  - BRADYCARDIA FOETAL [None]
  - CAESAREAN SECTION [None]
  - FOETAL HEART RATE DECELERATION [None]
  - MATERNAL DRUGS AFFECTING FOETUS [None]
  - MITRAL VALVE INCOMPETENCE [None]
  - PREMATURE BABY [None]
